FAERS Safety Report 15883474 (Version 5)
Quarter: 2019Q1

REPORT INFORMATION
  Report Type: Spontaneous
  Country: DE (occurrence: DE)
  Receive Date: 20190129
  Receipt Date: 20190308
  Transmission Date: 20190417
  Serious: Yes (Hospitalization, Other)
  Sender: FDA-Public Use
  Company Number: DE-AUROBINDO-AUR-APL-2019-004566

PATIENT

DRUGS (6)
  1. VENTAVIS [Suspect]
     Active Substance: ILOPROST
     Indication: PULMONARY ARTERIAL HYPERTENSION
     Dosage: UNK
     Route: 055
     Dates: start: 2013
  2. SILDENAFIL. [Suspect]
     Active Substance: SILDENAFIL
     Indication: PULMONARY ARTERIAL HYPERTENSION
  3. OPSUMIT [Suspect]
     Active Substance: MACITENTAN
     Indication: HEREDITARY HAEMORRHAGIC TELANGIECTASIA
  4. OPSUMIT [Suspect]
     Active Substance: MACITENTAN
     Indication: PULMONARY ARTERIAL HYPERTENSION
     Dosage: UNK
     Route: 048
     Dates: start: 2014
  5. SILDENAFIL. [Suspect]
     Active Substance: SILDENAFIL
     Indication: HEREDITARY HAEMORRHAGIC TELANGIECTASIA
     Dosage: UNK
     Route: 065
     Dates: start: 2006
  6. VENTAVIS [Suspect]
     Active Substance: ILOPROST
     Indication: HEREDITARY HAEMORRHAGIC TELANGIECTASIA

REACTIONS (11)
  - Epistaxis [Recovering/Resolving]
  - Off label use [Unknown]
  - Disease progression [Unknown]
  - Cardiac index increased [Unknown]
  - Condition aggravated [Unknown]
  - Pulmonary arterial hypertension [Unknown]
  - Transfusion [Unknown]
  - Pulmonary vascular resistance abnormality [Unknown]
  - Gastrointestinal haemorrhage [Recovered/Resolved]
  - Brain natriuretic peptide increased [Unknown]
  - Spontaneous intrahepatic portosystemic venous shunt [Unknown]

NARRATIVE: CASE EVENT DATE: 201010
